FAERS Safety Report 4308398-X (Version None)
Quarter: 2004Q1

REPORT INFORMATION
  Report Type: 
  Country: None (occurrence: None)
  Receive Date: 20040301
  Receipt Date: 20040217
  Transmission Date: 20041129
  Serious: Yes (Other)
  Sender: FDA-Public Use
  Company Number: US-GLAXOSMITHKLINE-B0324436A

PATIENT
  Age: 52 Year
  Sex: Female

DRUGS (4)
  1. PAROXETINE HCL [Suspect]
     Indication: DEPRESSION
  2. ZIPRASIDONE [Suspect]
  3. ALPRAZOLAM [Concomitant]
  4. RISPERIDONE [Concomitant]

REACTIONS (10)
  - ANXIETY [None]
  - DEPRESSION [None]
  - DRUG INTERACTION [None]
  - ELEVATED MOOD [None]
  - FLIGHT OF IDEAS [None]
  - GRANDIOSITY [None]
  - JUDGEMENT IMPAIRED [None]
  - LOGORRHOEA [None]
  - MANIA [None]
  - PANIC ATTACK [None]
